FAERS Safety Report 5483948-9 (Version None)
Quarter: 2007Q4

REPORT INFORMATION
  Report Type: 
  Country: None (occurrence: None)
  Receive Date: 20071012
  Receipt Date: 20071004
  Transmission Date: 20080405
  Serious: Yes (Disabling)
  Sender: FDA-Public Use
  Company Number: US-MERCK-0710USA01170

PATIENT
  Sex: Male

DRUGS (2)
  1. VYTORIN [Suspect]
     Indication: BLOOD CHOLESTEROL INCREASED
     Route: 048
  2. ANTARA [Concomitant]
     Route: 065

REACTIONS (2)
  - ARTHRALGIA [None]
  - JOINT SWELLING [None]
